FAERS Safety Report 8168988-3 (Version None)
Quarter: 2012Q1

REPORT INFORMATION
  Report Type: 
  Country: None (occurrence: None)
  Receive Date: 20120227
  Receipt Date: 20120219
  Transmission Date: 20120608
  Serious: Yes (Hospitalization, Disabling, Other)
  Sender: FDA-Public Use
  Company Number: JP-CELGENEUS-087-21880-11041030

PATIENT
  Sex: Female

DRUGS (11)
  1. ARGAMATE [Concomitant]
     Dosage: 50 GRAM
     Route: 048
     Dates: start: 20110224, end: 20110323
  2. REVLIMID [Suspect]
     Indication: MULTIPLE MYELOMA
     Dosage: 15 MILLIGRAM
     Route: 048
     Dates: start: 20110224, end: 20110314
  3. DEXAMETHASONE ACETATE [Suspect]
     Dosage: 8 MILLIGRAM
     Route: 048
     Dates: start: 20110324, end: 20110327
  4. REVLIMID [Suspect]
     Dosage: 15 MILLIGRAM
     Route: 048
     Dates: start: 20110324, end: 20110405
  5. DEXAMETHASONE ACETATE [Suspect]
     Indication: MULTIPLE MYELOMA
     Dosage: 8 MILLIGRAM
     Route: 048
     Dates: start: 20110224, end: 20110227
  6. OMEPRAZOLE [Concomitant]
     Indication: PROPHYLAXIS
     Dosage: 20 MILLIGRAM
     Route: 048
     Dates: start: 20110224, end: 20110405
  7. FENTANYL-100 [Concomitant]
     Dosage: 2.1 MILLIGRAM
     Route: 062
     Dates: start: 20110324, end: 20110405
  8. MAGMITT [Concomitant]
     Dosage: 660 MILLIGRAM
     Route: 048
     Dates: start: 20110224, end: 20110405
  9. MAGTECT [Concomitant]
     Indication: PROPHYLAXIS
     Dosage: 30 MILLILITER
     Route: 048
     Dates: start: 20110224, end: 20110405
  10. ASPIRIN [Concomitant]
     Indication: PROPHYLAXIS
     Dosage: 100 MILLIGRAM
     Route: 048
     Dates: start: 20110224, end: 20110405
  11. NSAID [Concomitant]
     Route: 065

REACTIONS (5)
  - RENAL FAILURE [None]
  - DEHYDRATION [None]
  - ENTEROCOLITIS [None]
  - PYREXIA [None]
  - THROMBOCYTOPENIA [None]
